FAERS Safety Report 5332949-X (Version None)
Quarter: 2007Q2

REPORT INFORMATION
  Report Type: 
  Country: None (occurrence: None)
  Receive Date: 20070306
  Receipt Date: 20060803
  Transmission Date: 20071010
  Serious: Yes (Hospitalization)
  Sender: FDA-Public Use
  Company Number: A03200604913

PATIENT
  Age: 83 Year
  Sex: Female

DRUGS (6)
  1. PLAVIX [Suspect]
     Dosage: ORAL
     Route: 048
  2. PRAVACHOL [Suspect]
     Dosage: ORAL
     Route: 048
  3. ATORVASTATIN [Concomitant]
  4. LOVASTATIN [Concomitant]
  5. EZETIMIBE [Concomitant]
  6. SIMVASTATIN [Concomitant]

REACTIONS (1)
  - HAEMORRHAGE [None]
